FAERS Safety Report 13090838 (Version 2)
Quarter: 2017Q1

REPORT INFORMATION
  Report Type: Report from Study
  Country: CA (occurrence: CA)
  Receive Date: 20170106
  Receipt Date: 20170126
  Transmission Date: 20170428
  Serious: Yes (Other)
  Sender: FDA-Public Use
  Company Number: CA-ROCHE-1874654

PATIENT
  Age: 64 Year
  Sex: Female

DRUGS (10)
  1. LANSOPRAZOLE. [Concomitant]
     Active Substance: LANSOPRAZOLE
  2. TEMAZEPAM. [Concomitant]
     Active Substance: TEMAZEPAM
  3. COVERSYL [Concomitant]
     Active Substance: PERINDOPRIL
  4. PAXIL (CANADA) [Concomitant]
  5. PAROXETINE. [Concomitant]
     Active Substance: PAROXETINE
  6. ACTONEL [Concomitant]
     Active Substance: RISEDRONATE SODIUM
  7. RITUXAN [Suspect]
     Active Substance: RITUXIMAB
     Indication: MYOSITIS
     Route: 042
     Dates: start: 20170112
  8. RITUXAN [Suspect]
     Active Substance: RITUXIMAB
     Indication: SCLERODERMA
  9. MELOXICAM. [Concomitant]
     Active Substance: MELOXICAM
  10. PREDNISONE. [Concomitant]
     Active Substance: PREDNISONE
     Dosage: WEANING
     Route: 065

REACTIONS (1)
  - Infusion related reaction [Unknown]

NARRATIVE: CASE EVENT DATE: 20170112
